FAERS Safety Report 16847216 (Version 1)
Quarter: 2019Q3

REPORT INFORMATION
  Report Type: Spontaneous
  Country: TW (occurrence: TW)
  Receive Date: 20190924
  Receipt Date: 20190924
  Transmission Date: 20191005
  Serious: Yes (Other)
  Sender: FDA-Public Use
  Company Number: PHHY2019TW174114

PATIENT
  Age: 18 Year
  Sex: Male

DRUGS (9)
  1. CERTICAN [Suspect]
     Active Substance: EVEROLIMUS
     Indication: IMMUNOSUPPRESSANT DRUG THERAPY
     Dosage: 4 DF, BID
     Route: 065
     Dates: start: 20190828
  2. MYFORTIC [Suspect]
     Active Substance: MYCOPHENOLATE SODIUM
     Dosage: 1 DF, QD
     Route: 065
  3. PROGRAF [Suspect]
     Active Substance: TACROLIMUS\TACROLIMUS ANHYDROUS
     Indication: PANCREAS TRANSPLANT
     Dosage: UNK UKN, UNK
     Route: 065
  4. MYFORTIC [Suspect]
     Active Substance: MYCOPHENOLATE SODIUM
     Dosage: 2 DF, BID
     Route: 065
     Dates: start: 20190828
  5. CERTICAN [Suspect]
     Active Substance: EVEROLIMUS
     Indication: PROPHYLAXIS AGAINST TRANSPLANT REJECTION
     Dosage: 1 DF, Q12H (FOR 8 MNTHS)
     Route: 065
     Dates: start: 20160615
  6. CERTICAN [Suspect]
     Active Substance: EVEROLIMUS
     Indication: PANCREAS TRANSPLANT
     Dosage: 2 DF, UNK
     Route: 065
  7. MYFORTIC [Suspect]
     Active Substance: MYCOPHENOLATE SODIUM
     Indication: PANCREAS TRANSPLANT
     Dosage: 2 DF, Q12H
     Route: 065
     Dates: start: 20190723
  8. MYFORTIC [Suspect]
     Active Substance: MYCOPHENOLATE SODIUM
     Indication: PROPHYLAXIS AGAINST TRANSPLANT REJECTION
     Dosage: 6 DF, BID
     Route: 065
     Dates: start: 20160615
  9. PROGRAF [Suspect]
     Active Substance: TACROLIMUS\TACROLIMUS ANHYDROUS
     Indication: IMMUNOSUPPRESSANT DRUG THERAPY
     Dosage: 4 DF, BID
     Route: 065
     Dates: start: 20190828

REACTIONS (8)
  - Cytomegalovirus infection [Recovered/Resolved]
  - Cytomegalovirus chorioretinitis [Recovered/Resolved]
  - Macular oedema [Not Recovered/Not Resolved]
  - Diabetic retinopathy [Recovering/Resolving]
  - Product use in unapproved indication [Unknown]
  - Diabetic ketoacidosis [Recovering/Resolving]
  - Blindness [Unknown]
  - Pancreas transplant rejection [Recovering/Resolving]
